FAERS Safety Report 5673968-3 (Version None)
Quarter: 2008Q1

REPORT INFORMATION
  Report Type: 
  Country: None (occurrence: None)
  Receive Date: 20080317
  Receipt Date: 20080305
  Transmission Date: 20080703
  Serious: Yes (Disabling)
  Sender: FDA-Public Use
  Company Number: CIP08000393

PATIENT
  Age: 77 Year
  Sex: Female

DRUGS (3)
  1. RISEDRONATE SODIUM [Suspect]
     Indication: OSTEOPOROSIS
     Dosage: 2.5 MG DAILY, ORAL
     Route: 048
     Dates: start: 20070710, end: 20071127
  2. LANSOPRAZOLE [Concomitant]
  3. NORVASC /00972401/ (AMLODIPINE) [Concomitant]

REACTIONS (1)
  - RENAL FAILURE CHRONIC [None]
